FAERS Safety Report 4279290-4 (Version None)
Quarter: 2004Q1

REPORT INFORMATION
  Report Type: 
  Country: None (occurrence: None)
  Receive Date: 20040127
  Receipt Date: 20040121
  Transmission Date: 20041129
  Serious: Yes (Death, Hospitalization)
  Sender: FDA-Public Use
  Company Number: PHBS2004IN01109

PATIENT
  Age: 73 Year
  Sex: Female

DRUGS (1)
  1. VOVERAN [Suspect]
     Indication: PAIN
     Dosage: 75 MG, UNK
     Route: 030

REACTIONS (2)
  - INJECTION SITE HAEMORRHAGE [None]
  - NECROTISING FASCIITIS [None]
